FAERS Safety Report 9301551 (Version 1)
Quarter: 2013Q2

REPORT INFORMATION
  Report Type: Spontaneous
  Country: US (occurrence: None)
  Receive Date: 20130520
  Receipt Date: 20130520
  Transmission Date: 20140414
  Serious: No
  Sender: FDA-Public Use
  Company Number: None

PATIENT
  Age: 80 Year
  Sex: Female
  Weight: 83.92 kg

DRUGS (1)
  1. CHICKEN FED ANTIBIOTICS [Suspect]

REACTIONS (2)
  - Diarrhoea [None]
  - Vomiting [None]
